FAERS Safety Report 24341289 (Version 3)
Quarter: 2024Q4

REPORT INFORMATION
  Report Type: Spontaneous
  Country: FR (occurrence: FR)
  Receive Date: 20240919
  Receipt Date: 20241122
  Transmission Date: 20250115
  Serious: Yes (Congenital Anomaly)
  Sender: BIOGEN
  Company Number: FR-BIOGEN-2024BI01283103

PATIENT

DRUGS (2)
  1. TYSABRI [Suspect]
     Active Substance: NATALIZUMAB
     Indication: Maternal exposure timing unspecified
     Dosage: EVERY 4 TO 5 WEEKS. 5 OR 6 TIMES DURING PREGNANCY
     Route: 050
  2. TYSABRI [Suspect]
     Active Substance: NATALIZUMAB
     Route: 050
     Dates: start: 201309

REACTIONS (2)
  - Ventricular septal defect [Not Recovered/Not Resolved]
  - Foetal exposure during pregnancy [Recovered/Resolved]

NARRATIVE: CASE EVENT DATE: 20240801
